FAERS Safety Report 17653536 (Version 2)
Quarter: 2020Q2

REPORT INFORMATION
  Report Type: Other
  Country: US (occurrence: US)
  Receive Date: 20200409
  Receipt Date: 20200622
  Transmission Date: 20200713
  Serious: Yes (Other)
  Sender: FDA-Public Use
  Company Number: US-INTELLIPHARMACEUTICS CORP.-2082597

PATIENT

DRUGS (3)
  1. QUETIAPINE FUMARATE. [Suspect]
     Active Substance: QUETIAPINE FUMARATE
     Indication: PRODUCT USED FOR UNKNOWN INDICATION
     Route: 065
  2. LOPINAVIR [Suspect]
     Active Substance: LOPINAVIR
     Route: 065
  3. RITONAVIR. [Suspect]
     Active Substance: RITONAVIR
     Route: 065

REACTIONS (2)
  - Coma [None]
  - Drug interaction [None]
